FAERS Safety Report 9577839 (Version 2)
Quarter: 2013Q4

REPORT INFORMATION
  Report Type: Spontaneous
  Country: US (occurrence: US)
  Receive Date: 20131001
  Receipt Date: 20131001
  Transmission Date: 20140711
  Serious: No
  Sender: FDA-Public Use
  Company Number: US-AMGEN-USASP2013004540

PATIENT
  Age: 51 Year
  Sex: Female
  Weight: 58.05 kg

DRUGS (8)
  1. ENBREL [Suspect]
     Indication: RHEUMATOID ARTHRITIS
     Dosage: 50 MG/ML, QWK
     Route: 058
     Dates: start: 20130102
  2. ATIVAN [Concomitant]
     Dosage: 1 MG, QID
     Route: 048
  3. MOTRIN [Concomitant]
     Dosage: 400 MG, UNK
     Route: 048
  4. PREDNISONE [Concomitant]
     Dosage: 5 MG, UNK
     Route: 048
  5. TRAZODONE [Concomitant]
     Dosage: 100 MG, QHS
     Route: 048
  6. SEROQUEL [Concomitant]
     Dosage: 400 MG, UNK
     Route: 048
  7. HYDROCODONE [Concomitant]
     Dosage: 5 MG, AS NECESSARY
  8. IBUPROFEN [Concomitant]
     Dosage: 600 UNK, BID

REACTIONS (2)
  - Dermatitis allergic [Unknown]
  - Injection site reaction [Unknown]
